FAERS Safety Report 8362646-8 (Version None)
Quarter: 2012Q2

REPORT INFORMATION
  Report Type: 
  Country: None (occurrence: None)
  Receive Date: 20120516
  Receipt Date: 20120508
  Transmission Date: 20120825
  Serious: No
  Sender: FDA-Public Use
  Company Number: US-PFIZER INC-2012114167

PATIENT
  Sex: Female

DRUGS (8)
  1. CODEINE SULFATE [Suspect]
     Dosage: UNK
  2. POTASSIUM PENICILLIN G [Suspect]
     Dosage: UNK
  3. ASPIRIN [Suspect]
     Dosage: UNK
  4. CEPHALOSPORIN [Suspect]
     Dosage: UNK
  5. BACITRACIN [Suspect]
     Dosage: UNK
  6. POLYMYCIN B SULFATE [Suspect]
     Dosage: UNK
  7. PHENYTOIN [Suspect]
     Dosage: UNK
  8. POVIDONE IODINE [Suspect]
     Dosage: UNK

REACTIONS (1)
  - DRUG HYPERSENSITIVITY [None]
